FAERS Safety Report 5971740-8 (Version None)
Quarter: 2008Q4

REPORT INFORMATION
  Report Type: 
  Country: None (occurrence: None)
  Receive Date: 20081201
  Receipt Date: 20081124
  Transmission Date: 20090506
  Serious: Yes (Other)
  Sender: FDA-Public Use
  Company Number: US-BAYER-200814581BCC

PATIENT
  Sex: Male
  Weight: 77 kg

DRUGS (2)
  1. ALKA-SELTZER PLUS COLD + SINUS [Suspect]
     Indication: SINUS DISORDER
  2. ZETIA [Concomitant]

REACTIONS (1)
  - GASTRIC ULCER [None]
